FAERS Safety Report 19115199 (Version 1)
Quarter: 2021Q2

REPORT INFORMATION
  Report Type: Report from Study
  Country: US (occurrence: US)
  Receive Date: 20210409
  Receipt Date: 20210409
  Transmission Date: 20210717
  Serious: Yes (Other)
  Sender: FDA-Public Use
  Company Number: US-BRISTOL-MYERS SQUIBB COMPANY-BMS-2021-032444

PATIENT
  Age: 72 Year
  Sex: Female
  Weight: 59.42 kg

DRUGS (1)
  1. ABATACEPT [Suspect]
     Active Substance: ABATACEPT
     Indication: RHEUMATOID ARTHRITIS
     Dosage: MONTHLY
     Route: 042

REACTIONS (3)
  - Abscess [Unknown]
  - Bone sarcoma [Unknown]
  - Tooth disorder [Unknown]
